FAERS Safety Report 25893465 (Version 1)
Quarter: 2025Q4

REPORT INFORMATION
  Report Type: Report from Study
  Country: US (occurrence: US)
  Receive Date: 20251008
  Receipt Date: 20251008
  Transmission Date: 20260117
  Serious: Yes (Other)
  Sender: ALEXION PHARMACEUTICALS
  Company Number: US-ASTRAZENECA-202510USA002336US

PATIENT
  Age: 21 Year
  Sex: Male

DRUGS (1)
  1. STRENSIQ [Suspect]
     Active Substance: ASFOTASE ALFA
     Indication: Phosphorus metabolism disorder
     Dosage: 160 MILLIGRAM, TIW, 25G/30G|6MM 31G INSULIN SYRINGE
     Route: 065

REACTIONS (4)
  - Loss of consciousness [Unknown]
  - Injection site pain [Unknown]
  - Sluggishness [Unknown]
  - Urticaria [Unknown]
